FAERS Safety Report 23606010 (Version 1)
Quarter: 2024Q1

REPORT INFORMATION
  Report Type: Spontaneous
  Country: US (occurrence: US)
  Receive Date: 20240307
  Receipt Date: 20240307
  Transmission Date: 20240410
  Serious: Yes (Life-Threatening, Hospitalization)
  Sender: FDA-Public Use
  Company Number: US-MYLANLABS-2024M1020448

PATIENT
  Age: 57 Year
  Sex: Male

DRUGS (3)
  1. SULFAMETHOXAZOLE\TRIMETHOPRIM [Suspect]
     Active Substance: SULFAMETHOXAZOLE\TRIMETHOPRIM
     Indication: Pneumocystis jirovecii pneumonia
     Dosage: UNK
     Route: 065
  2. PREDNISONE [Suspect]
     Active Substance: PREDNISONE
     Indication: Pneumocystis jirovecii pneumonia
     Dosage: UNK, RECEIVED HIGH DOSE
     Route: 065
  3. PREDNISONE [Suspect]
     Active Substance: PREDNISONE
     Dosage: UNK, DRUG WAS TAPERED PRIOR ONSET OF SJS OWING IMPROVEMENT IN PNEUMONIA
     Route: 065

REACTIONS (2)
  - Stevens-Johnson syndrome [Unknown]
  - Symptom masked [Unknown]
